FAERS Safety Report 12305343 (Version 5)
Quarter: 2016Q4

REPORT INFORMATION
  Report Type: Report from Study
  Country: JP (occurrence: JP)
  Receive Date: 20160426
  Receipt Date: 20161207
  Transmission Date: 20170207
  Serious: Yes (Hospitalization, Other)
  Sender: FDA-Public Use
  Company Number: JP-GLAXOSMITHKLINE-JP2016JPN055141

PATIENT
  Age: 61 Year
  Sex: Male
  Weight: 76 kg

DRUGS (23)
  1. BERASUS LA [Concomitant]
     Indication: PULMONARY HYPERTENSION
  2. GLUCOSE [Suspect]
     Active Substance: DEXTROSE
     Indication: PULMONARY HYPERTENSION
  3. ADCIRCA [Concomitant]
     Active Substance: TADALAFIL
     Indication: PULMONARY VENO-OCCLUSIVE DISEASE
     Dosage: UNK
     Dates: start: 20150226
  4. BERASUS LA [Concomitant]
     Indication: PULMONARY VENO-OCCLUSIVE DISEASE
     Dosage: UNK
     Dates: start: 20150812
  5. ADCIRCA [Concomitant]
     Active Substance: TADALAFIL
     Indication: PULMONARY HYPERTENSION
  6. FLOLAN [Suspect]
     Active Substance: EPOPROSTENOL SODIUM
     Indication: PULMONARY VENO-OCCLUSIVE DISEASE
     Dosage: UNK
     Route: 041
     Dates: start: 20151225, end: 20160329
  7. AMBRISENTAN [Suspect]
     Active Substance: AMBRISENTAN
     Indication: PULMONARY VENO-OCCLUSIVE DISEASE
     Dosage: 5 MG, QD
     Route: 048
     Dates: start: 20150304, end: 20150317
  8. GLUCOSE [Suspect]
     Active Substance: DEXTROSE
     Indication: PULMONARY VENO-OCCLUSIVE DISEASE
     Dosage: UNK
     Dates: start: 20160329, end: 20160331
  9. TREPROST [Concomitant]
     Indication: PULMONARY VENO-OCCLUSIVE DISEASE
     Dosage: UNK
     Dates: start: 20160329
  10. FEBURIC [Concomitant]
     Active Substance: FEBUXOSTAT
     Dosage: UNK
     Dates: start: 20160109
  11. PREDNISOLONE. [Suspect]
     Active Substance: PREDNISOLONE
     Dosage: UNK
     Route: 048
     Dates: start: 20160331
  12. FUROSEMIDE. [Concomitant]
     Active Substance: FUROSEMIDE
     Dosage: UNK
     Dates: start: 20150227
  13. BAKTAR [Concomitant]
     Active Substance: SULFAMETHOXAZOLE\TRIMETHOPRIM
     Indication: INFECTION PROPHYLAXIS
     Dosage: UNK
     Dates: start: 20160331
  14. AMBRISENTAN [Suspect]
     Active Substance: AMBRISENTAN
     Indication: PULMONARY HYPERTENSION
     Dosage: 10 MG, QD
     Route: 048
     Dates: start: 20150318
  15. REVATIO [Concomitant]
     Active Substance: SILDENAFIL CITRATE
     Indication: PULMONARY VENO-OCCLUSIVE DISEASE
     Dosage: UNK
     Dates: start: 20150512
  16. SOL-MELCORT [Suspect]
     Active Substance: METHYLPREDNISOLONE SODIUM SUCCINATE
     Indication: PULMONARY VENO-OCCLUSIVE DISEASE
     Dosage: UNK
     Dates: start: 20160329, end: 20160331
  17. TREPROST [Concomitant]
     Indication: PULMONARY HYPERTENSION
  18. PARIET [Concomitant]
     Active Substance: RABEPRAZOLE SODIUM
     Indication: GASTRITIS PROPHYLAXIS
     Dosage: UNK
  19. FLOLAN [Suspect]
     Active Substance: EPOPROSTENOL SODIUM
     Indication: PULMONARY HYPERTENSION
  20. SOL-MELCORT [Suspect]
     Active Substance: METHYLPREDNISOLONE SODIUM SUCCINATE
     Indication: PULMONARY HYPERTENSION
  21. REVATIO [Concomitant]
     Active Substance: SILDENAFIL CITRATE
     Indication: PULMONARY HYPERTENSION
  22. SAMSCA [Concomitant]
     Active Substance: TOLVAPTAN
     Dosage: UNK
     Dates: start: 20150812
  23. BONALON [Concomitant]
     Active Substance: ALENDRONATE SODIUM
     Indication: OSTEOPOROSIS PROPHYLAXIS
     Dosage: UNK
     Dates: start: 20160401

REACTIONS (5)
  - Diarrhoea [Not Recovered/Not Resolved]
  - Occult blood positive [Recovering/Resolving]
  - Cardiac failure [Recovering/Resolving]
  - Platelet count decreased [Not Recovered/Not Resolved]
  - Haemoptysis [Recovering/Resolving]

NARRATIVE: CASE EVENT DATE: 20151215
